FAERS Safety Report 23291091 (Version 3)
Quarter: 2025Q2

REPORT INFORMATION
  Report Type: Report from Study
  Country: CA (occurrence: CA)
  Receive Date: 20231213
  Receipt Date: 20250624
  Transmission Date: 20250717
  Serious: Yes (Hospitalization, Other)
  Sender: SANDOZ
  Company Number: CA-002147023-NVSC2020CA021197

PATIENT
  Age: 52 Year
  Sex: Female

DRUGS (5)
  1. ERELZI [Suspect]
     Active Substance: ETANERCEPT-SZZS
     Dosage: 50 MG, QW
     Route: 058
     Dates: start: 20200129
  2. ERELZI [Suspect]
     Active Substance: ETANERCEPT-SZZS
     Indication: Ankylosing spondylitis
     Dosage: 50 MG, QW STRENGTH: 50 MG
     Route: 058
     Dates: start: 20200122
  3. ERELZI [Suspect]
     Active Substance: ETANERCEPT-SZZS
     Dosage: 50 MG, QW
     Route: 058
     Dates: start: 20220601
  4. ERELZI [Suspect]
     Active Substance: ETANERCEPT-SZZS
     Route: 042
  5. INDOMETHACIN [Concomitant]
     Active Substance: INDOMETHACIN
     Indication: Product used for unknown indication
     Dosage: 1 DF, TID
     Route: 048
     Dates: start: 2004

REACTIONS (26)
  - Food poisoning [Unknown]
  - Monkeypox [Unknown]
  - Epilepsy [Unknown]
  - Cardiac failure [Unknown]
  - Ankylosing spondylitis [Unknown]
  - Lyme disease [Unknown]
  - Cellulitis [Unknown]
  - Neoplasm malignant [Unknown]
  - Fatigue [Unknown]
  - Blood pressure abnormal [Unknown]
  - Neck pain [Unknown]
  - Joint swelling [Unknown]
  - Musculoskeletal stiffness [Unknown]
  - Back pain [Unknown]
  - Arthralgia [Unknown]
  - Discomfort [Unknown]
  - Tenderness [Unknown]
  - COVID-19 [Unknown]
  - Incorrect dosage administered [Unknown]
  - Feeding disorder [Unknown]
  - Taste disorder [Unknown]
  - Pain [Unknown]
  - Sleep disorder [Unknown]
  - Spinal pain [Unknown]
  - Pain in extremity [Unknown]
  - Anaemia [Unknown]

NARRATIVE: CASE EVENT DATE: 20200122
